FAERS Safety Report 23468504 (Version 1)
Quarter: 2024Q1

REPORT INFORMATION
  Report Type: Report from Study
  Country: CO (occurrence: CO)
  Receive Date: 20240202
  Receipt Date: 20240202
  Transmission Date: 20240409
  Serious: Yes (Hospitalization, Other)
  Sender: FDA-Public Use
  Company Number: CO-AMGEN-COLSL2024019282

PATIENT
  Age: 77 Year
  Sex: Female

DRUGS (1)
  1. XGEVA [Suspect]
     Active Substance: DENOSUMAB
     Indication: Prophylaxis
     Dosage: 120 MILLIGRAM, QMO
     Route: 058
     Dates: start: 20230928

REACTIONS (4)
  - Diplegia [Recovered/Resolved]
  - Facial paralysis [Recovered/Resolved]
  - Asthenia [Recovered/Resolved]
  - Blood calcium decreased [Not Recovered/Not Resolved]
